FAERS Safety Report 14591402 (Version 1)
Quarter: 2018Q1

REPORT INFORMATION
  Report Type: Spontaneous
  Country: FR (occurrence: FR)
  Receive Date: 20180302
  Receipt Date: 20180302
  Transmission Date: 20180509
  Serious: Yes (Hospitalization)
  Sender: FDA-Public Use
  Company Number: FR-SA-2018SA056629

PATIENT
  Age: 48 Year
  Sex: Male
  Weight: 83 kg

DRUGS (4)
  1. AMOXICILLIN. [Suspect]
     Active Substance: AMOXICILLIN
     Indication: PROPHYLAXIS
     Route: 048
     Dates: start: 20170823, end: 20170823
  2. REMICADE [Concomitant]
     Active Substance: INFLIXIMAB
     Route: 042
  3. ATARAX [Concomitant]
     Active Substance: HYDROXYZINE HYDROCHLORIDE
     Route: 048
  4. CEFOTAXIME SODIQUE [Suspect]
     Active Substance: CEFOTAXIME SODIUM
     Route: 017
     Dates: start: 20170824, end: 20170824

REACTIONS (2)
  - Dermatitis exfoliative generalised [Recovered/Resolved]
  - Pyrexia [Recovered/Resolved]

NARRATIVE: CASE EVENT DATE: 20170823
